FAERS Safety Report 21260171 (Version 2)
Quarter: 2024Q3

REPORT INFORMATION
  Report Type: Report from Study
  Country: AU (occurrence: AU)
  Receive Date: 20220826
  Receipt Date: 20240917
  Transmission Date: 20241017
  Serious: Yes (Other)
  Sender: NOVARTIS
  Company Number: AU-NOVARTISPH-NVSC2021AU230498

PATIENT
  Sex: Female

DRUGS (6)
  1. KESIMPTA [Suspect]
     Active Substance: OFATUMUMAB
     Indication: Relapsing-remitting multiple sclerosis
     Dosage: 20 MG, QMO
     Route: 058
     Dates: start: 20210702
  2. KESIMPTA [Suspect]
     Active Substance: OFATUMUMAB
     Dosage: UNK, EVERY 28 DAYS
     Route: 065
     Dates: start: 20240514
  3. KESIMPTA [Suspect]
     Active Substance: OFATUMUMAB
     Dosage: UNK, EVERY 28 DAYS
     Route: 065
     Dates: start: 20240611
  4. KESIMPTA [Suspect]
     Active Substance: OFATUMUMAB
     Dosage: UNK, EVERY 28 DAYS
     Route: 065
     Dates: start: 20240709
  5. KESIMPTA [Suspect]
     Active Substance: OFATUMUMAB
     Dosage: UNK (LATE DOSE)
     Route: 065
     Dates: start: 20240810
  6. KESIMPTA [Suspect]
     Active Substance: OFATUMUMAB
     Dosage: UNK (EARLY DOSE)
     Route: 065
     Dates: start: 20240906

REACTIONS (10)
  - Skin cancer [Unknown]
  - Nausea [Recovered/Resolved]
  - Pain [Unknown]
  - Asthenia [Unknown]
  - Feeling abnormal [Unknown]
  - Dyspepsia [Unknown]
  - Eructation [Unknown]
  - COVID-19 [Unknown]
  - Vomiting [Unknown]
  - Inappropriate schedule of product administration [Unknown]
